FAERS Safety Report 4720196-1 (Version None)
Quarter: 2005Q3

REPORT INFORMATION
  Report Type: 
  Country: None (occurrence: None)
  Receive Date: 20050719
  Receipt Date: 20050707
  Transmission Date: 20060218
  Serious: Yes (Disabling)
  Sender: FDA-Public Use
  Company Number: 2005JP001398

PATIENT
  Age: 60 Year
  Sex: Male

DRUGS (2)
  1. PROGRAF (TACROLIMUS) CAPSULE [Suspect]
     Indication: MYASTHENIA GRAVIS
     Dosage: 2.00MG, UNKNOWN/D, ORAL
     Route: 048
     Dates: start: 20020723, end: 20041222
  2. MESTINON [Concomitant]

REACTIONS (1)
  - NEPHRITIS INTERSTITIAL [None]
